FAERS Safety Report 8953537 (Version 1)
Quarter: 2012Q4

REPORT INFORMATION
  Report Type: 
  Country: CA (occurrence: CA)
  Receive Date: 20121206
  Receipt Date: 20121206
  Transmission Date: 20130627
  Serious: Yes (Other)
  Sender: FDA-Public Use
  Company Number: CA-ASTRAZENECA-2012SE89636

PATIENT
  Age: 52 Year
  Sex: Male
  Weight: 139.3 kg

DRUGS (4)
  1. CRESTOR [Suspect]
     Route: 048
  2. DIOVAN HCT [Concomitant]
     Dosage: 160 MG/12.5 MG
     Route: 048
  3. HUMALOG [Concomitant]
     Route: 065
  4. HUMULIN N [Concomitant]
     Dosage: 100 UNIT/ML
     Route: 058

REACTIONS (10)
  - Back pain [Unknown]
  - Breath odour [Unknown]
  - Dysphagia [Unknown]
  - Hypoaesthesia oral [Unknown]
  - Occipital neuralgia [Unknown]
  - Pain [Unknown]
  - Tongue pruritus [Unknown]
  - Amnesia [Unknown]
  - Asthenia [Unknown]
  - Muscular weakness [Unknown]
